FAERS Safety Report 6656980-7 (Version None)
Quarter: 2010Q1

REPORT INFORMATION
  Report Type: 
  Country: None (occurrence: None)
  Receive Date: 20100330
  Receipt Date: 20100323
  Transmission Date: 20100710
  Serious: Yes (Other)
  Sender: FDA-Public Use
  Company Number: US-BIOGENIDEC-2010BI010287

PATIENT
  Age: 55 Year
  Sex: Female

DRUGS (1)
  1. AVONEX [Suspect]
     Indication: MULTIPLE SCLEROSIS
     Route: 030
     Dates: start: 19980115

REACTIONS (6)
  - ATRIAL FIBRILLATION [None]
  - DIZZINESS [None]
  - ERYTHEMA [None]
  - INFLUENZA LIKE ILLNESS [None]
  - PALLOR [None]
  - SUPRAVENTRICULAR TACHYCARDIA [None]
